FAERS Safety Report 8525177-8 (Version None)
Quarter: 2012Q3

REPORT INFORMATION
  Report Type: 
  Country: None (occurrence: None)
  Receive Date: 20120720
  Receipt Date: 20120716
  Transmission Date: 20120928
  Serious: Yes (Other)
  Sender: FDA-Public Use
  Company Number: PHHY2011US03476

PATIENT
  Sex: Male

DRUGS (3)
  1. CLOZARIL [Suspect]
     Dosage: UNK UKN, UNK
  2. CLOPIN [Concomitant]
  3. CLOZARIL [Suspect]
     Dosage: 125 MG, QD

REACTIONS (7)
  - PARALYSIS [None]
  - HYPERSENSITIVITY [None]
  - PRURITUS [None]
  - SCRATCH [None]
  - MUSCULOSKELETAL STIFFNESS [None]
  - DYSSTASIA [None]
  - OBSESSIVE-COMPULSIVE DISORDER [None]
